FAERS Safety Report 19004610 (Version 1)
Quarter: 2021Q1

REPORT INFORMATION
  Report Type: Other
  Country: GB (occurrence: GB)
  Receive Date: 20210312
  Receipt Date: 20210312
  Transmission Date: 20210420
  Serious: Yes (Other)
  Sender: FDA-Public Use
  Company Number: GB-ROCHE-2745885

PATIENT
  Sex: Female

DRUGS (1)
  1. ROACTEMRA [Suspect]
     Active Substance: TOCILIZUMAB
     Indication: RHEUMATOID ARTHRITIS
     Route: 058
     Dates: start: 20201010

REACTIONS (5)
  - Thrombosis [Unknown]
  - Feeling abnormal [Unknown]
  - Dizziness [Unknown]
  - Haemorrhage [Unknown]
  - Vaginal haemorrhage [Recovered/Resolved]
